FAERS Safety Report 4697854-0 (Version None)
Quarter: 2005Q2

REPORT INFORMATION
  Report Type: 
  Country: None (occurrence: None)
  Receive Date: 20050621
  Receipt Date: 20050615
  Transmission Date: 20051028
  Serious: Yes (Hospitalization)
  Sender: FDA-Public Use
  Company Number: 2005AL002299

PATIENT
  Age: 76 Year
  Sex: Female

DRUGS (6)
  1. SERAX [Suspect]
     Dosage: 25 MG QD PO
     Route: 048
     Dates: start: 20050430, end: 20050506
  2. EQUANIL [Suspect]
     Dosage: 750 MG; QD; PO
     Route: 048
     Dates: start: 20050429, end: 20050506
  3. PREVISCAN ({NULL}) [Suspect]
     Dosage: 20 MG; QD; PO
     Route: 048
     Dates: start: 20050427, end: 20050506
  4. COVERSYL [Concomitant]
  5. OMEPRAZOLE [Concomitant]
  6. DETENSIEL [Concomitant]

REACTIONS (2)
  - EOSINOPHILIA [None]
  - URTICARIA [None]
